FAERS Safety Report 10877856 (Version 2)
Quarter: 2015Q2

REPORT INFORMATION
  Report Type: Report from Study
  Country: IT (occurrence: IT)
  Receive Date: 20150302
  Receipt Date: 20150501
  Transmission Date: 20150821
  Serious: Yes (Hospitalization)
  Sender: FDA-Public Use
  Company Number: PHHY2012IT066909

PATIENT
  Age: 61 Year
  Sex: Female
  Weight: 74 kg

DRUGS (9)
  1. CERTICAN [Suspect]
     Active Substance: EVEROLIMUS
     Dosage: 1.5 UNK, UNK
     Route: 048
     Dates: end: 20130627
  2. NEORAL SANDIMMUN [Concomitant]
     Active Substance: CYCLOSPORINE
     Dosage: 1.5 DF, (1 + 1/2 CAPSULE)
     Dates: start: 20120802
  3. DELTACORTENE [Concomitant]
     Active Substance: PREDNISONE
     Indication: PROPHYLAXIS AGAINST TRANSPLANT REJECTION
     Dosage: 25 MG, UNK
     Route: 048
     Dates: start: 20090730
  4. CARDIOASPIRIN [Concomitant]
     Active Substance: ASPIRIN
     Indication: PRODUCT USED FOR UNKNOWN INDICATION
     Dosage: 100 MG, QD
     Route: 048
     Dates: start: 20070814, end: 20120802
  5. CERTICAN [Suspect]
     Active Substance: EVEROLIMUS
     Indication: PROPHYLAXIS AGAINST TRANSPLANT REJECTION
     Dosage: 1.5 MG, QD
     Route: 048
     Dates: start: 20061129, end: 20120625
  6. NEORAL SANDIMMUN [Concomitant]
     Active Substance: CYCLOSPORINE
     Indication: PROPHYLAXIS AGAINST TRANSPLANT REJECTION
     Dosage: 1 DF, BID
     Route: 065
     Dates: start: 20050609
  7. CELLCEPT [Concomitant]
     Active Substance: MYCOPHENOLATE MOFETIL\MYCOPHENOLATE MOFETIL HYDROCHLORIDE
     Indication: PROPHYLAXIS AGAINST TRANSPLANT REJECTION
     Dosage: 1000 MG, UNK
     Route: 065
     Dates: start: 20130627
  8. CERTICAN [Suspect]
     Active Substance: EVEROLIMUS
     Dosage: 1.25 MG, QD (0.75 + 0.50 MG/DIE)
     Route: 048
  9. NEORAL SANDIMMUN [Concomitant]
     Active Substance: CYCLOSPORINE
     Dosage: 125 MG, UNK
     Route: 048
     Dates: start: 20130627, end: 20150316

REACTIONS (6)
  - Acute kidney injury [Recovered/Resolved]
  - Confusional state [Recovered/Resolved]
  - Dehydration [Recovered/Resolved]
  - Dehydration [Recovered/Resolved]
  - Confusional state [Recovered/Resolved]
  - Oedema peripheral [Unknown]

NARRATIVE: CASE EVENT DATE: 20120625
